FAERS Safety Report 25697764 (Version 1)
Quarter: 2025Q3

REPORT INFORMATION
  Report Type: Spontaneous
  Country: US (occurrence: US)
  Receive Date: 20250819
  Receipt Date: 20250819
  Transmission Date: 20251021
  Serious: No
  Sender: RANBAXY
  Company Number: US-MIMS-SUN-2025-USA-55317

PATIENT
  Age: 18 Year
  Sex: Male

DRUGS (1)
  1. ADAPALENE [Suspect]
     Active Substance: ADAPALENE
     Indication: Acne
     Route: 065
     Dates: start: 20240801, end: 202504

REACTIONS (3)
  - Inappropriate schedule of product administration [Unknown]
  - Therapy cessation [Unknown]
  - Drug ineffective [Unknown]
